FAERS Safety Report 15808422 (Version 2)
Quarter: 2019Q1

REPORT INFORMATION
  Report Type: Spontaneous
  Country: LK (occurrence: LK)
  Receive Date: 20190110
  Receipt Date: 20190123
  Transmission Date: 20190417
  Serious: Yes (Death)
  Sender: FDA-Public Use
  Company Number: LK-IGSA-SR10007616

PATIENT
  Age: 82 Year
  Sex: Female

DRUGS (11)
  1. AMLODIPINE [Concomitant]
     Active Substance: AMLODIPINE BESYLATE
  2. MONTELUKAST [Concomitant]
     Active Substance: MONTELUKAST SODIUM
  3. MAGNESIUM [Concomitant]
     Active Substance: MAGNESIUM
  4. MEROPENEM. [Concomitant]
     Active Substance: MEROPENEM
  5. ALBUTEIN [Suspect]
     Active Substance: ALBUMIN HUMAN
     Indication: PRODUCT USED FOR UNKNOWN INDICATION
     Dosage: UNK
     Dates: start: 20181225
  6. HYDROCORTISONE. [Concomitant]
     Active Substance: HYDROCORTISONE
  7. KCL [Concomitant]
     Active Substance: POTASSIUM CHLORIDE
  8. LACTULOSE. [Concomitant]
     Active Substance: LACTULOSE
  9. PANTOPRAZOLE [Concomitant]
     Active Substance: PANTOPRAZOLE
  10. LOSARTAN. [Concomitant]
     Active Substance: LOSARTAN
  11. CARBOCISTEINE [Concomitant]
     Active Substance: CARBOCYSTEINE

REACTIONS (1)
  - Heart rate increased [Fatal]

NARRATIVE: CASE EVENT DATE: 20181225
